FAERS Safety Report 7619254-3 (Version None)
Quarter: 2011Q3

REPORT INFORMATION
  Report Type: 
  Country: None (occurrence: None)
  Receive Date: 20110718
  Receipt Date: 20110708
  Transmission Date: 20111222
  Serious: Yes (Hospitalization, Disabling, Other)
  Sender: FDA-Public Use
  Company Number: US-ASTRAZENECA-2011SE17663

PATIENT
  Age: 67 Year
  Sex: Female

DRUGS (3)
  1. NEXIUM [Concomitant]
     Route: 048
  2. CRESTOR [Suspect]
     Route: 048
  3. SYMBICORT [Concomitant]
     Dosage: 160/4.5 MCG TWO PUFFS TWO TIMES A DAY
     Route: 055

REACTIONS (7)
  - SPINAL OPERATION [None]
  - ACTIVITIES OF DAILY LIVING IMPAIRED [None]
  - ASTHMA [None]
  - PAIN [None]
  - DYSSTASIA [None]
  - SPINAL COLUMN STENOSIS [None]
  - DISABILITY [None]
